FAERS Safety Report 17288341 (Version 1)
Quarter: 2020Q1

REPORT INFORMATION
  Report Type: Spontaneous
  Country: US (occurrence: US)
  Receive Date: 20200120
  Receipt Date: 20200120
  Transmission Date: 20200409
  Serious: Yes (Hospitalization)
  Sender: FDA-Public Use
  Company Number: US-STRIDES ARCOLAB LIMITED-2020SP000478

PATIENT
  Age: 48 Year
  Sex: Female

DRUGS (1)
  1. AMLODIPINE [Suspect]
     Active Substance: AMLODIPINE BESYLATE
     Indication: PRODUCT USED FOR UNKNOWN INDICATION
     Dosage: UNK, (90-DAY SUPPLY OF MULTIPLE MEDICATIONS INCLUDING AMLODIPINE)
     Route: 065

REACTIONS (4)
  - Suicide attempt [Unknown]
  - Vasoplegia syndrome [Not Recovered/Not Resolved]
  - Hypotension [Recovered/Resolved]
  - Intentional overdose [Unknown]
